FAERS Safety Report 9410120 (Version 1)
Quarter: 2013Q3

REPORT INFORMATION
  Report Type: Report from Study
  Country: DE (occurrence: TR)
  Receive Date: 20130719
  Receipt Date: 20130719
  Transmission Date: 20140515
  Serious: Yes (Death)
  Sender: FDA-Public Use
  Company Number: DE-ACTELION-A-US2013-86008

PATIENT
  Age: 72 Year
  Sex: Male

DRUGS (4)
  1. VENTAVIS [Suspect]
     Indication: PRODUCT USED FOR UNKNOWN INDICATION
     Dosage: 6 X 1
     Route: 055
  2. PULMICORT [Concomitant]
  3. CLEXANE [Concomitant]
  4. ATROVENT [Concomitant]

REACTIONS (1)
  - General physical health deterioration [Fatal]
